FAERS Safety Report 6087512-2 (Version None)
Quarter: 2009Q1

REPORT INFORMATION
  Report Type: 
  Country: None (occurrence: None)
  Receive Date: 20090223
  Receipt Date: 20090210
  Transmission Date: 20090719
  Serious: Yes (Other)
  Sender: FDA-Public Use
  Company Number: ZA-ELI_LILLY_AND_COMPANY-ZA200902002034

PATIENT
  Age: 60 Year
  Sex: Female

DRUGS (8)
  1. CYMBALTA [Suspect]
     Indication: MAJOR DEPRESSION
     Dosage: 30 MG, DAILY (1/D)
     Route: 048
     Dates: start: 20081120
  2. CYMBALTA [Suspect]
     Dosage: 60 MG, DAILY (1/D)
     Route: 065
     Dates: start: 20081127
  3. CYMBALTA [Suspect]
     Dosage: 90 MG, DAILY (1/D)
     Route: 065
     Dates: start: 20081201
  4. CYMBALTA [Suspect]
     Dosage: 60 MG, UNKNOWN
     Route: 065
  5. CYMBALTA [Suspect]
     Dosage: 30 MG, UNKNOWN
     Route: 065
     Dates: end: 20090209
  6. NEURONTIN [Concomitant]
     Indication: AFFECTIVE DISORDER
     Dosage: 300 MG, 3/D
     Route: 048
  7. MICARDIS [Concomitant]
     Indication: HYPERTENSION
     Dosage: 40 MG, DAILY (1/D)
     Route: 048
     Dates: start: 20050101
  8. ZOLPIDEM [Concomitant]
     Indication: INSOMNIA
     Dosage: 1 D/F, AT NIGHT
     Route: 048

REACTIONS (9)
  - CHEST DISCOMFORT [None]
  - DRY MOUTH [None]
  - FEELING ABNORMAL [None]
  - FLUID RETENTION [None]
  - GALACTORRHOEA [None]
  - HEADACHE [None]
  - HEART RATE INCREASED [None]
  - HOT FLUSH [None]
  - PRURITUS GENERALISED [None]
